FAERS Safety Report 8801556 (Version 1)
Quarter: 2012Q4

REPORT INFORMATION
  Report Type: 
  Country: US (occurrence: US)
  Receive Date: 20120921
  Receipt Date: 20120921
  Transmission Date: 20130627
  Serious: Yes (Other)
  Sender: FDA-Public Use
  Company Number: US-ASTRAZENECA-2012SE71476

PATIENT
  Age: 49 Year
  Sex: Female

DRUGS (22)
  1. SEROQUEL [Suspect]
     Route: 048
  2. SEROQUEL [Suspect]
     Route: 048
  3. RITALIN [Suspect]
     Route: 065
  4. LYRICA [Suspect]
     Route: 065
  5. XANAX [Suspect]
     Indication: BIPOLAR DISORDER
     Route: 065
  6. XANAX [Suspect]
     Indication: PANIC ATTACK
     Route: 065
  7. XANAX [Suspect]
     Indication: ANXIETY
     Route: 065
  8. XANAX [Suspect]
     Indication: DEPRESSION
     Route: 065
  9. CYMBALTA [Suspect]
     Indication: BIPOLAR DISORDER
     Route: 065
  10. CYMBALTA [Suspect]
     Indication: FIBROMYALGIA
     Route: 065
  11. VISTARIL [Suspect]
     Route: 065
  12. NORCO [Suspect]
     Indication: PAIN
     Route: 065
  13. NORCO [Suspect]
     Indication: CARPAL TUNNEL SYNDROME
     Route: 065
  14. NORCO [Suspect]
     Indication: BACK PAIN
     Route: 065
  15. NORCO [Suspect]
     Indication: NECK PAIN
     Route: 065
  16. NORCO [Suspect]
     Indication: SPINAL PAIN
     Route: 065
  17. LORTAB [Suspect]
     Indication: PAIN
     Route: 065
  18. VICODIN [Suspect]
     Indication: PAIN
     Route: 065
  19. AMBIEN [Suspect]
     Route: 065
  20. ZANAFLEX [Suspect]
     Route: 065
  21. CLONIDINE [Suspect]
     Route: 065
  22. UNSPECIFIED MEDICATIONS [Suspect]
     Route: 065

REACTIONS (32)
  - Intervertebral disc disorder [Unknown]
  - Suicidal ideation [Unknown]
  - Excoriation [Unknown]
  - Bipolar disorder [Unknown]
  - Gait disturbance [Unknown]
  - Hypoaesthesia [Unknown]
  - Drug effect incomplete [Unknown]
  - Pain in extremity [Unknown]
  - Pain in extremity [Unknown]
  - Arthralgia [Unknown]
  - Pain in extremity [Unknown]
  - Social fear [Unknown]
  - Mood swings [Unknown]
  - Anxiety [Unknown]
  - Insomnia [Unknown]
  - Nervous system disorder [Unknown]
  - Headache [Unknown]
  - Hallucinations, mixed [Unknown]
  - Incontinence [Unknown]
  - Visual impairment [Unknown]
  - Back pain [Unknown]
  - Neck pain [Unknown]
  - Spinal pain [Unknown]
  - Speech disorder [Unknown]
  - Hallucination [Unknown]
  - Back pain [Unknown]
  - Hypoaesthesia [Unknown]
  - Feeling abnormal [Unknown]
  - Panic attack [Unknown]
  - Aphagia [Unknown]
  - Disturbance in attention [Unknown]
  - Depression [Unknown]
